FAERS Safety Report 18809560 (Version 3)
Quarter: 2021Q1

REPORT INFORMATION
  Report Type: Report from Study
  Country: None (occurrence: US)
  Receive Date: 20210129
  Receipt Date: 20210311
  Transmission Date: 20210419
  Serious: Yes (Other)
  Sender: FDA-Public Use
  Company Number: US-ABBVIE-21K-163-3746327-00

PATIENT
  Sex: Male

DRUGS (1)
  1. HUMIRA [Suspect]
     Active Substance: ADALIMUMAB
     Indication: HIDRADENITIS
     Dosage: CITRATE FREE
     Route: 058

REACTIONS (6)
  - Palatal disorder [Unknown]
  - Gingival abscess [Unknown]
  - Gingival disorder [Unknown]
  - Hidradenitis [Not Recovered/Not Resolved]
  - Scar [Unknown]
  - Noninfective gingivitis [Unknown]
